FAERS Safety Report 4808379-3 (Version None)
Quarter: 2005Q4

REPORT INFORMATION
  Report Type: 
  Country: None (occurrence: None)
  Receive Date: 20051021
  Receipt Date: 20020517
  Transmission Date: 20060501
  Serious: No
  Sender: FDA-Public Use
  Company Number: EWC020531090

PATIENT
  Age: 31 Year
  Sex: Male
  Weight: 94 kg

DRUGS (3)
  1. ZYPREXA [Suspect]
     Indication: PSYCHOTIC DISORDER
     Dosage: 25 MG/DAY
     Dates: start: 20020118, end: 20020208
  2. METADON [Concomitant]
  3. OXAZEPAM [Concomitant]

REACTIONS (3)
  - BLOOD ALKALINE PHOSPHATASE INCREASED [None]
  - OEDEMA PERIPHERAL [None]
  - WHITE BLOOD CELL COUNT INCREASED [None]
